FAERS Safety Report 6773982-0 (Version None)
Quarter: 2010Q2

REPORT INFORMATION
  Report Type: 
  Country: None (occurrence: None)
  Receive Date: 20100617
  Receipt Date: 20100606
  Transmission Date: 20101027
  Serious: No
  Sender: FDA-Public Use
  Company Number: US-B.I. PHARMACEUTICALS,INC./RIDGEFIELD-2010-BP-06388BP

PATIENT
  Age: 70 Year
  Sex: Female

DRUGS (2)
  1. ZANTAC 150 [Suspect]
     Indication: DYSPEPSIA
     Dosage: 600 MG
     Route: 048
  2. ATIVAN [Concomitant]
     Indication: ANXIETY

REACTIONS (2)
  - DYSPEPSIA [None]
  - NAUSEA [None]
